FAERS Safety Report 7625483 (Version 6)
Quarter: 2013Q3

REPORT INFORMATION
  Report Type: Report from Study
  Country: DE (occurrence: DE)
  Receive Date: 20101012
  Receipt Date: 20130801
  Transmission Date: 20140515
  Serious: Yes (Hospitalization)
  Sender: FDA-Public Use
  Company Number: DE-ROCHE-730565

PATIENT
  Age: 67 Year
  Sex: Female
  Weight: 86 kg

DRUGS (7)
  1. TRASTUZUMAB [Suspect]
     Indication: BREAST CANCER
     Dosage: LOADING DOSE: 8 MG/KG, FORM: VIALS
     Route: 042
  2. TRASTUZUMAB [Suspect]
     Dosage: TOTAL DOSE: 516 MG
     Route: 042
  3. DOCETAXEL [Suspect]
     Indication: BREAST CANCER
     Dosage: TOTAL DOSE: 150 MG, FORM: VIALS, LAST DOSE: 10 SEP 2010
     Route: 042
  4. CARBOPLATIN [Suspect]
     Indication: BREAST CANCER
     Dosage: DOSE LEVEL: 6 AUC, TOTAL DOSE: 712.9 MG, FORM: VIALS, LAST DOSE 10 SEP 2010
     Route: 042
     Dates: start: 20100706
  5. EUTHYROX [Concomitant]
     Dosage: REPORTED AS: EUTHYREOX.
     Route: 065
  6. HYDROCHLOROTHIAZIDE [Concomitant]
  7. OXAZEPAM [Concomitant]

REACTIONS (1)
  - Deep vein thrombosis [Recovered/Resolved]
